FAERS Safety Report 7304300-7 (Version None)
Quarter: 2011Q1

REPORT INFORMATION
  Report Type: 
  Country: None (occurrence: None)
  Receive Date: 20110221
  Receipt Date: 20110211
  Transmission Date: 20110831
  Serious: Yes (Other)
  Sender: FDA-Public Use
  Company Number: ES-ASTRAZENECA-2011SE08352

PATIENT
  Age: 72 Year
  Sex: Female

DRUGS (11)
  1. PROPOFOL [Suspect]
     Dosage: 5 % IN WATER
     Route: 003
  2. VECURONIUM BROMIDE [Concomitant]
     Indication: ALLERGY TEST
     Route: 023
  3. ETOMIDATE [Concomitant]
     Indication: ALLERGY TEST
     Route: 023
  4. BENZODIAZEPINES [Concomitant]
     Indication: ALLERGY TEST
     Route: 023
  5. KETAMINE [Concomitant]
     Indication: ALLERGY TEST
     Route: 023
  6. FENTANYL [Concomitant]
     Indication: ALLERGY TEST
     Route: 023
  7. CISATRACURIUM [Concomitant]
     Indication: ALLERGY TEST
     Route: 023
  8. ROCURONIUM BROMIDE [Concomitant]
     Indication: ALLERGY TEST
     Route: 023
  9. BUPIVACAINE HCL [Concomitant]
     Indication: ALLERGY TEST
     Route: 023
  10. PROPOFOL [Suspect]
     Indication: ALLERGY TEST
     Dosage: 0.1 MG/L
     Route: 023
  11. SUCCINYLCHOLINE [Concomitant]
     Indication: ALLERGY TEST
     Route: 023

REACTIONS (1)
  - DRUG ERUPTION [None]
